FAERS Safety Report 4876739-0 (Version None)
Quarter: 2005Q4

REPORT INFORMATION
  Report Type: 
  Country: None (occurrence: None)
  Receive Date: 20051206
  Receipt Date: 20050907
  Transmission Date: 20060501
  Serious: No
  Sender: FDA-Public Use
  Company Number: USA050189259

PATIENT
  Age: 80 Year
  Sex: Male
  Weight: 90 kg

DRUGS (5)
  1. CYMBALTA [Suspect]
     Indication: DIABETIC NEUROPATHY
     Dosage: 60 MG DAY
     Dates: start: 20050126
  2. XANAX (ALPRAZOLAM DUM) [Concomitant]
  3. GLIPIZIDE [Concomitant]
  4. COUMADIN [Concomitant]
  5. THYROID TAB [Concomitant]

REACTIONS (6)
  - BURNING SENSATION [None]
  - CHOKING SENSATION [None]
  - DIZZINESS [None]
  - DRUG INEFFECTIVE [None]
  - EMOTIONAL DISTRESS [None]
  - INSOMNIA [None]
